FAERS Safety Report 7867560-X (Version None)
Quarter: 2011Q4

REPORT INFORMATION
  Report Type: 
  Country: None (occurrence: None)
  Receive Date: 20111028
  Receipt Date: 20111020
  Transmission Date: 20120403
  Serious: Yes (Hospitalization, Other)
  Sender: FDA-Public Use
  Company Number: PHEH2009US03937

PATIENT
  Sex: Female

DRUGS (21)
  1. RESTORIL [Concomitant]
  2. INSULIN [Concomitant]
  3. ZANTAC [Concomitant]
  4. CIPROFLOXACIN [Concomitant]
  5. FOSAMAX [Suspect]
  6. CHLORZOXAZONE [Concomitant]
  7. ZOMETA [Suspect]
     Indication: METASTATIC NEOPLASM
     Dosage: 4 MG, MONTHLY
     Dates: start: 20061001
  8. ZOMETA [Suspect]
     Indication: BREAST CANCER METASTATIC
  9. ZYRTEC [Concomitant]
  10. MELOXICAM [Concomitant]
  11. FASLODEX [Concomitant]
  12. CARDIZEM [Concomitant]
  13. NOVOLOG [Concomitant]
  14. LEVEMIR [Concomitant]
  15. METFORMIN [Concomitant]
  16. LEXAPRO [Concomitant]
  17. ACCUPRIL [Concomitant]
  18. MUCINEX [Concomitant]
  19. FLUCONAZOLE [Concomitant]
  20. LORTAB [Concomitant]
  21. MEGESTROL ACETATE [Concomitant]

REACTIONS (68)
  - OSTEONECROSIS OF JAW [None]
  - BACK PAIN [None]
  - HYPERTENSION [None]
  - RASH [None]
  - PERIPHERAL SENSORY NEUROPATHY [None]
  - NECK INJURY [None]
  - HEPATIC STEATOSIS [None]
  - ANHEDONIA [None]
  - CARDIAC MURMUR [None]
  - NEPHROLITHIASIS [None]
  - BONE LESION [None]
  - SCARLET FEVER [None]
  - KIDNEY INFECTION [None]
  - OEDEMA PERIPHERAL [None]
  - LYMPHOEDEMA [None]
  - DIVERTICULUM INTESTINAL [None]
  - CONTUSION [None]
  - OEDEMA [None]
  - ANXIETY [None]
  - DIABETES MELLITUS [None]
  - OSTEOPENIA [None]
  - VITAMIN D DECREASED [None]
  - CONSTIPATION [None]
  - ARTERIOSCLEROSIS CORONARY ARTERY [None]
  - GASTROOESOPHAGEAL REFLUX DISEASE [None]
  - DISABILITY [None]
  - HAEMORRHOIDS [None]
  - GOITRE [None]
  - NECK PAIN [None]
  - GROIN PAIN [None]
  - DYSPNOEA EXERTIONAL [None]
  - ORAL INFECTION [None]
  - SWELLING FACE [None]
  - GINGIVAL PAIN [None]
  - CARPAL TUNNEL SYNDROME [None]
  - INSOMNIA [None]
  - BRONCHITIS [None]
  - ARTHRITIS [None]
  - METASTASES TO BONE [None]
  - PNEUMONIA [None]
  - ASTHMA [None]
  - SKIN DISORDER [None]
  - CHOLELITHIASIS [None]
  - HYPOKALAEMIA [None]
  - ABDOMINAL PAIN [None]
  - TENDONITIS [None]
  - POLLAKIURIA [None]
  - FALL [None]
  - INJURY [None]
  - PAIN [None]
  - RUBELLA [None]
  - MUMPS [None]
  - URTICARIA [None]
  - OSTEOPOROSIS [None]
  - CHRONIC SINUSITIS [None]
  - PAIN IN EXTREMITY [None]
  - SCOLIOSIS [None]
  - CARDIOMEGALY [None]
  - JOINT SWELLING [None]
  - OSTEITIS [None]
  - SEASONAL ALLERGY [None]
  - RECTAL POLYP [None]
  - GINGIVAL ERYTHEMA [None]
  - DYSPEPSIA [None]
  - HEAD INJURY [None]
  - OSTEOARTHRITIS [None]
  - ACETABULUM FRACTURE [None]
  - SPINAL OSTEOARTHRITIS [None]
